FAERS Safety Report 6257256-2 (Version None)
Quarter: 2009Q3

REPORT INFORMATION
  Report Type: 
  Country: None (occurrence: None)
  Receive Date: 20090706
  Receipt Date: 20090624
  Transmission Date: 20100115
  Serious: Yes (Life-Threatening)
  Sender: FDA-Public Use
  Company Number: KR-PFIZER INC-2006139120

PATIENT
  Age: 71 Year

DRUGS (3)
  1. SUNITINIB MALATE [Suspect]
     Indication: GASTROINTESTINAL STROMAL TUMOUR
     Dosage: 37.5 MG, 1X/DAY
     Route: 048
     Dates: start: 20060222
  2. ITOPRIDE [Concomitant]
     Route: 048
     Dates: start: 20060831
  3. MEGESTROL ACETATE [Concomitant]
     Route: 048
     Dates: start: 20060726

REACTIONS (1)
  - MENTAL STATUS CHANGES [None]
